FAERS Safety Report 10949094 (Version 1)
Quarter: 2015Q1

REPORT INFORMATION
  Report Type: Report from Study
  Country: JP (occurrence: JP)
  Receive Date: 20150324
  Receipt Date: 20150324
  Transmission Date: 20150721
  Serious: Yes (Death, Other)
  Sender: FDA-Public Use
  Company Number: JP-ASTELLAS-2006JP000558

PATIENT
  Sex: Male

DRUGS (26)
  1. TAZOCIN [Concomitant]
     Active Substance: PIPERACILLIN SODIUM\TAZOBACTAM SODIUM
     Indication: SEPSIS
     Route: 042
     Dates: start: 20050621, end: 20050621
  2. ZOVIRAX [Concomitant]
     Active Substance: ACYCLOVIR
     Indication: PRODUCT USED FOR UNKNOWN INDICATION
     Route: 041
     Dates: start: 20050701, end: 20050804
  3. TARGOCID [Suspect]
     Active Substance: TEICOPLANIN
     Indication: SEPSIS
     Route: 042
     Dates: start: 20050622, end: 20050709
  4. HUMULIN R [Concomitant]
     Active Substance: INSULIN HUMAN
     Indication: PRODUCT USED FOR UNKNOWN INDICATION
     Route: 042
     Dates: start: 20050711, end: 20050711
  5. MEROPEN                            /01250501/ [Concomitant]
     Active Substance: MEROPENEM
     Indication: SEPSIS
     Route: 041
     Dates: start: 20050615, end: 20050618
  6. MEROPEN                            /01250501/ [Concomitant]
     Active Substance: MEROPENEM
     Route: 041
     Dates: start: 20050712, end: 20050727
  7. BROACT [Concomitant]
     Active Substance: CEFPIROME
     Indication: SEPSIS
     Route: 042
     Dates: start: 20050627, end: 20050628
  8. TARGOCID [Suspect]
     Active Substance: TEICOPLANIN
     Indication: STAPHYLOCOCCAL INFECTION
     Route: 042
     Dates: start: 20050621, end: 20050621
  9. MEROPEN [Concomitant]
     Active Substance: MEROPENEM
     Indication: PRODUCT USED FOR UNKNOWN INDICATION
     Route: 042
     Dates: start: 20050615, end: 20050618
  10. PRIMPERAN [Concomitant]
     Active Substance: METOCLOPRAMIDE HYDROCHLORIDE
     Indication: PRODUCT USED FOR UNKNOWN INDICATION
     Route: 042
     Dates: start: 20050714, end: 20050714
  11. NEUTROGIN [Concomitant]
     Active Substance: LENOGRASTIM
     Indication: PRODUCT USED FOR UNKNOWN INDICATION
     Route: 042
     Dates: start: 20050701, end: 20050716
  12. PRODIF [Suspect]
     Active Substance: FOSFLUCONAZOLE
     Indication: PRODUCT USED FOR UNKNOWN INDICATION
     Route: 042
     Dates: start: 20050619, end: 20050704
  13. FUNGUARD [Concomitant]
     Active Substance: MICAFUNGIN SODIUM
     Indication: SEPSIS
     Route: 041
     Dates: start: 20050705, end: 20050804
  14. FUNGUARD [Concomitant]
     Active Substance: MICAFUNGIN SODIUM
     Indication: PRODUCT USED FOR UNKNOWN INDICATION
     Route: 042
     Dates: start: 20050705, end: 20050804
  15. VANCOMYCIN HYDROCHLORIDE. [Concomitant]
     Active Substance: VANCOMYCIN HYDROCHLORIDE
     Indication: SEPSIS
     Route: 041
     Dates: start: 20050616, end: 20050630
  16. TACROLIMUS. [Suspect]
     Active Substance: TACROLIMUS
     Indication: BONE MARROW TRANSPLANT
     Route: 042
     Dates: start: 2005, end: 20050713
  17. TARGOCID [Suspect]
     Active Substance: TEICOPLANIN
     Route: 042
     Dates: start: 20050713, end: 20050804
  18. CIPROXAN-I.V. [Concomitant]
     Indication: PRODUCT USED FOR UNKNOWN INDICATION
     Route: 042
     Dates: start: 20050629, end: 20050711
  19. OMEGACIN [Concomitant]
     Active Substance: BIAPENEM
     Indication: PRODUCT USED FOR UNKNOWN INDICATION
     Dosage: 0.6 G, UNKNOWN FREQ.
     Route: 042
     Dates: start: 20050728, end: 20050804
  20. PRODIF [Concomitant]
     Active Substance: FOSFLUCONAZOLE
     Indication: SEPSIS
     Route: 042
     Dates: start: 20050619, end: 20050704
  21. CIPROXAN [Concomitant]
     Active Substance: CIPROFLOXACIN
     Indication: SEPSIS
     Route: 041
     Dates: start: 20050629, end: 20050711
  22. MEROPEN [Concomitant]
     Active Substance: MEROPENEM
     Route: 042
     Dates: start: 20050712, end: 20050727
  23. VANCOMYCIN [Concomitant]
     Active Substance: VANCOMYCIN
     Indication: PRODUCT USED FOR UNKNOWN INDICATION
     Route: 042
     Dates: start: 20050616, end: 20050630
  24. TARGOCID [Suspect]
     Active Substance: TEICOPLANIN
     Route: 042
     Dates: start: 20050711, end: 20050711
  25. AMIKACIN SULFATE. [Concomitant]
     Active Substance: AMIKACIN SULFATE
     Indication: SEPSIS
     Route: 042
     Dates: start: 20050621, end: 20050628
  26. PREDONINE [Concomitant]
     Active Substance: PREDNISOLONE\PREDNISOLONE ACETATE\PREDNISOLONE SODIUM SUCCINATE
     Indication: PRODUCT USED FOR UNKNOWN INDICATION
     Route: 042
     Dates: start: 20050624, end: 20050730

REACTIONS (5)
  - Hyperglycaemia [Recovered/Resolved]
  - Headache [Recovering/Resolving]
  - Pneumonia [Fatal]
  - Renal impairment [Recovered/Resolved]
  - Nausea [Recovered/Resolved]
